FAERS Safety Report 6774381-8 (Version None)
Quarter: 2010Q2

REPORT INFORMATION
  Report Type: 
  Country: None (occurrence: None)
  Receive Date: 20100617
  Receipt Date: 20100609
  Transmission Date: 20101027
  Serious: Yes (Other)
  Sender: FDA-Public Use
  Company Number: BR-ASTRAZENECA-2010SE27002

PATIENT
  Age: 2 Year
  Sex: Female
  Weight: 11 kg

DRUGS (3)
  1. ATACAND [Suspect]
     Route: 048
     Dates: start: 20100602
  2. SIMVASTATIN [Suspect]
     Route: 048
     Dates: start: 20100602
  3. ACETYLSALICYLIC ACID [Suspect]
     Route: 048
     Dates: start: 20100602

REACTIONS (1)
  - ACCIDENTAL EXPOSURE [None]
